FAERS Safety Report 6656894-2 (Version None)
Quarter: 2010Q1

REPORT INFORMATION
  Report Type: 
  Country: None (occurrence: None)
  Receive Date: 20100329
  Receipt Date: 20100329
  Transmission Date: 20100710
  Serious: No
  Sender: FDA-Public Use
  Company Number: None

PATIENT
  Age: 44 Year
  Sex: Female
  Weight: 111.86 kg

DRUGS (1)
  1. IODIXANOL [Suspect]
     Indication: COMPUTERISED TOMOGRAM
     Dosage: 150 ML ONCE IV
     Route: 042
     Dates: start: 20100326, end: 20100326

REACTIONS (4)
  - DYSPNOEA [None]
  - LIP SWELLING [None]
  - RESPIRATORY DISORDER [None]
  - RHINORRHOEA [None]
